FAERS Safety Report 18648818 (Version 1)
Quarter: 2020Q4

REPORT INFORMATION
  Report Type: Spontaneous
  Country: US (occurrence: US)
  Receive Date: 20201221
  Receipt Date: 20201221
  Transmission Date: 20210114
  Serious: Yes (Death)
  Sender: FDA-Public Use
  Company Number: None

PATIENT
  Age: 58 Year
  Sex: Male
  Weight: 68.85 kg

DRUGS (5)
  1. PRAVASTATIN SODIUM 80 MG [Suspect]
     Active Substance: PRAVASTATIN SODIUM
     Indication: HYPERLIPIDAEMIA
     Dosage: ?          QUANTITY:90 TABLET(S);?
     Route: 048
  2. PRAVASTATIN SODIUM 40 MG [Suspect]
     Active Substance: PRAVASTATIN SODIUM
  3. COENZYME Q10 [Concomitant]
     Active Substance: DIETARY SUPPLEMENT\UBIDECARENONE
  4. OMEPRAZOLE DR [Concomitant]
     Active Substance: OMEPRAZOLE
  5. VITAMIN D3 [Concomitant]
     Active Substance: CHOLECALCIFEROL

REACTIONS (3)
  - Blood cholesterol decreased [None]
  - Death [None]
  - Cerebral haemorrhage [None]

NARRATIVE: CASE EVENT DATE: 20200717
